FAERS Safety Report 6843062-4 (Version None)
Quarter: 2010Q3

REPORT INFORMATION
  Report Type: 
  Country: None (occurrence: None)
  Receive Date: 20100712
  Receipt Date: 20100629
  Transmission Date: 20110219
  Serious: Yes (Hospitalization)
  Sender: FDA-Public Use
  Company Number: 2010-2330

PATIENT
  Sex: Male

DRUGS (1)
  1. INCRELEX [Suspect]
     Indication: INSULIN-LIKE GROWTH FACTOR DECREASED
     Dosage: 46 UNITS INTERMITTENTLY (46 UNITS, INTERMITTENTLY), SUBCUTANEOUS
     Route: 058
     Dates: start: 20090101

REACTIONS (1)
  - BONE PAIN [None]
